FAERS Safety Report 12442746 (Version 1)
Quarter: 2016Q2

REPORT INFORMATION
  Report Type: Spontaneous
  Country: US (occurrence: None)
  Receive Date: 20160606
  Receipt Date: 20160606
  Transmission Date: 20160815
  Serious: No
  Sender: FDA-Public Use
  Company Number: None

PATIENT
  Age: 30 Year
  Sex: Male
  Weight: 90.72 kg

DRUGS (1)
  1. OBAGI NU-DERM [Suspect]
     Active Substance: HYDROQUINONE
     Indication: ACNE
     Dosage: 1 OUNCE(S) 1 APPLIED TO A SURFACE, USUALLY THE SKIN
     Route: 061
     Dates: start: 20160408, end: 20160410

REACTIONS (2)
  - Application site pain [None]
  - Application site rash [None]

NARRATIVE: CASE EVENT DATE: 20160411
